FAERS Safety Report 6067278-2 (Version None)
Quarter: 2009Q1

REPORT INFORMATION
  Report Type: 
  Country: None (occurrence: None)
  Receive Date: 20090204
  Receipt Date: 20090204
  Transmission Date: 20090719
  Serious: Yes (Hospitalization)
  Sender: FDA-Public Use
  Company Number: None

PATIENT
  Age: 78 Year
  Sex: Male

DRUGS (2)
  1. IBUPROFEN TABLETS [Suspect]
     Indication: PAIN
     Dosage: ? MG PRN PO
     Route: 048
     Dates: start: 20080128, end: 20090203
  2. NAPROXEN [Suspect]
     Indication: PAIN
     Dosage: ? MG ONCE PO
     Route: 048
     Dates: start: 20090202, end: 20090203

REACTIONS (1)
  - ANGIOEDEMA [None]
